FAERS Safety Report 15322973 (Version 4)
Quarter: 2022Q1

REPORT INFORMATION
  Report Type: Spontaneous
  Country: BE (occurrence: BE)
  Receive Date: 20180827
  Receipt Date: 20220103
  Transmission Date: 20220424
  Serious: Yes (Death)
  Sender: FDA-Public Use
  Company Number: PHHY2018BE078080

PATIENT
  Sex: Male

DRUGS (9)
  1. MYCOPHENOLATE MOFETIL [Suspect]
     Active Substance: MYCOPHENOLATE MOFETIL
     Indication: Restrictive allograft syndrome
     Dosage: UNK
     Route: 065
  2. AZITHROMYCIN [Suspect]
     Active Substance: AZITHROMYCIN
     Indication: Restrictive allograft syndrome
     Dosage: UNK
     Route: 065
  3. MONTELUKAST SODIUM [Suspect]
     Active Substance: MONTELUKAST SODIUM
     Indication: Restrictive allograft syndrome
     Dosage: UNK
     Route: 065
  4. CYCLOSPORINE [Interacting]
     Active Substance: CYCLOSPORINE
     Indication: Immunosuppressant drug therapy
     Dosage: UNK (DOSE INCREASED BY PLUS 20 PERCENT)
     Route: 065
  5. MABTHERA [Suspect]
     Active Substance: RITUXIMAB
     Indication: Restrictive allograft syndrome
     Dosage: UNK
     Route: 065
  6. PIRFENIDONE [Interacting]
     Active Substance: PIRFENIDONE
     Indication: Restrictive allograft syndrome
     Dosage: 2403 MG, QD (3X 801)
     Route: 065
  7. PIRFENIDONE [Interacting]
     Active Substance: PIRFENIDONE
     Dosage: 3 X 267 MG, QD
     Route: 065
  8. PIRFENIDONE [Interacting]
     Active Substance: PIRFENIDONE
     Dosage: INITIAL DOSE OF 1 WK, 3 X 534 MG/DAY FOR 1 WEEK
     Route: 065
  9. AZATHIOPRINE [Concomitant]
     Active Substance: AZATHIOPRINE
     Indication: Immunosuppressant drug therapy
     Dosage: UNK
     Route: 065

REACTIONS (5)
  - Respiratory failure [Fatal]
  - Drug level decreased [Unknown]
  - Drug interaction [Unknown]
  - Therapeutic product ineffective for unapproved indication [Unknown]
  - Off label use [Unknown]
